FAERS Safety Report 6180885-1 (Version None)
Quarter: 2009Q2

REPORT INFORMATION
  Report Type: 
  Country: None (occurrence: None)
  Receive Date: 20090504
  Receipt Date: 20090504
  Transmission Date: 20091009
  Serious: Yes (Other)
  Sender: FDA-Public Use
  Company Number: None

PATIENT
  Age: 53 Year
  Sex: Female
  Weight: 49.8957 kg

DRUGS (3)
  1. CYMBALTA [Suspect]
     Indication: ARTHRITIS
     Dosage: 30 MG PER DAY PO
     Route: 048
     Dates: start: 20070315, end: 20090503
  2. CYMBALTA [Suspect]
     Indication: DEPRESSION
     Dosage: 30 MG PER DAY PO
     Route: 048
     Dates: start: 20070315, end: 20090503
  3. CYMBALTA [Suspect]
     Indication: FIBROMYALGIA
     Dosage: 30 MG PER DAY PO
     Route: 048
     Dates: start: 20070315, end: 20090503

REACTIONS (10)
  - BALANCE DISORDER [None]
  - DIZZINESS [None]
  - FALL [None]
  - HEADACHE [None]
  - HEPATOSPLENOMEGALY [None]
  - PAIN [None]
  - PARAESTHESIA [None]
  - PHOTOPSIA [None]
  - TINNITUS [None]
  - VISUAL IMPAIRMENT [None]
